FAERS Safety Report 10946071 (Version 1)
Quarter: 2015Q1

REPORT INFORMATION
  Report Type: Spontaneous
  Country: US (occurrence: None)
  Receive Date: 20150212
  Receipt Date: 20150212
  Transmission Date: 20150721
  Serious: No
  Sender: FDA-Public Use
  Company Number: TPA2011A00687

PATIENT
  Age: 74 Year
  Sex: Female
  Weight: 72.58 kg

DRUGS (14)
  1. PLAVIX [Concomitant]
     Active Substance: CLOPIDOGREL BISULFATE
  2. PAROXETINE [Concomitant]
     Active Substance: PAROXETINE\PAROXETINE HYDROCHLORIDE
  3. HCTZ [Concomitant]
     Active Substance: HYDROCHLOROTHIAZIDE
  4. CALCIUM [Concomitant]
     Active Substance: CALCIUM
  5. ULORIC [Suspect]
     Active Substance: FEBUXOSTAT
     Indication: GOUT
     Route: 048
     Dates: start: 201012
  6. GLYBURIDE. [Concomitant]
     Active Substance: GLYBURIDE
  7. LEVOTHYROXINE [Concomitant]
     Active Substance: LEVOTHYROXINE
  8. FEXOFENADINE [Concomitant]
     Active Substance: FEXOFENADINE\FEXOFENADINE HYDROCHLORIDE
  9. CRESTOR [Concomitant]
     Active Substance: ROSUVASTATIN CALCIUM
  10. ISOSORBIDE [Concomitant]
     Active Substance: ISOSORBIDE
  11. MULTIVITAMIN [Concomitant]
     Active Substance: VITAMINS
  12. VITAMIN B [Concomitant]
     Active Substance: VITAMIN B
  13. LISINOPRIL. [Concomitant]
     Active Substance: LISINOPRIL
  14. METOPROLOL XL [Concomitant]
     Active Substance: METOPROLOL

REACTIONS (3)
  - Skin discolouration [None]
  - Peripheral coldness [None]
  - Hypoaesthesia [None]
